FAERS Safety Report 25763713 (Version 1)
Quarter: 2025Q3

REPORT INFORMATION
  Report Type: Spontaneous
  Country: US (occurrence: US)
  Receive Date: 20250905
  Receipt Date: 20250905
  Transmission Date: 20251021
  Serious: No
  Sender: DOMPE FARMACEUTICI
  Company Number: US-FARMAPROD-202410-3764

PATIENT
  Sex: Female
  Weight: 87.23 kg

DRUGS (9)
  1. OXERVATE [Suspect]
     Active Substance: CENEGERMIN-BKBJ
     Indication: Neurotrophic keratopathy
     Route: 047
     Dates: start: 20241003
  2. ASPIRIN [Concomitant]
     Active Substance: ASPIRIN
  3. PROGESTERONE [Concomitant]
     Active Substance: PROGESTERONE
  4. LORATADINE [Concomitant]
     Active Substance: LORATADINE
  5. ACETAMINOPHEN [Concomitant]
     Active Substance: ACETAMINOPHEN
  6. MILK OF MAGNESIA [Concomitant]
     Active Substance: MAGNESIUM HYDROXIDE
  7. MELOXICAM [Concomitant]
     Active Substance: MELOXICAM
  8. PREDNISOLONE ACETATE [Concomitant]
     Active Substance: PREDNISOLONE ACETATE
  9. PRESERVATIVE FREE REWETTING DROPS [Concomitant]

REACTIONS (4)
  - Eye pain [Unknown]
  - Eye irritation [Unknown]
  - Dry eye [Unknown]
  - Photophobia [Unknown]
